FAERS Safety Report 7412736-9 (Version None)
Quarter: 2011Q2

REPORT INFORMATION
  Report Type: 
  Country: None (occurrence: None)
  Receive Date: 20110405
  Receipt Date: 20110317
  Transmission Date: 20111010
  Serious: Yes (Death)
  Sender: FDA-Public Use
  Company Number: 2011P1005205

PATIENT
  Age: 37 Year
  Sex: Female

DRUGS (11)
  1. NAPROXEN [Suspect]
     Dosage: ; PO
     Route: 048
  2. AMLODIPINE [Suspect]
     Dosage: ; PO
     Route: 048
  3. ETHANOL (NO PREF. NAME) [Suspect]
     Dosage: ; PO
     Route: 048
  4. CYCLIC ANTIDEPRESSANT, UNKNOWN (NO PREF. NAME) [Suspect]
     Dosage: ; PO
     Route: 048
  5. ZIPRASIDONE [Suspect]
     Dosage: ; PO
     Route: 048
  6. ALPRAZOLAM [Suspect]
     Dosage: ; PO
     Route: 048
  7. DIPHENHYDRAMINE (NO PREF. NAME) [Suspect]
     Dosage: ; PO
     Route: 048
  8. GABAPENTIN [Suspect]
     Dosage: ; PO
     Route: 048
  9. ACETAMINOPHEN [Suspect]
     Dosage: ; PO
     Route: 048
  10. ZOLPIDEM [Suspect]
     Dosage: ; PO
     Route: 048
  11. OXYCONTIN [Suspect]
     Dosage: ; PO
     Route: 048

REACTIONS (1)
  - COMPLETED SUICIDE [None]
